FAERS Safety Report 5943927-1 (Version None)
Quarter: 2008Q4

REPORT INFORMATION
  Report Type: 
  Country: None (occurrence: None)
  Receive Date: 20081106
  Receipt Date: 20081029
  Transmission Date: 20090506
  Serious: Yes (Hospitalization, Other)
  Sender: FDA-Public Use
  Company Number: US-ELI_LILLY_AND_COMPANY-US200808004440

PATIENT
  Sex: Female
  Weight: 92.971 kg

DRUGS (16)
  1. BYETTA [Suspect]
     Indication: TYPE 2 DIABETES MELLITUS
     Dosage: 5 UG, 2/D
     Route: 065
     Dates: start: 20060725, end: 20060905
  2. BYETTA [Suspect]
     Dosage: 10 UG, 2/D
     Route: 065
     Dates: start: 20060905, end: 20080502
  3. VYTORIN [Concomitant]
     Indication: HYPERLIPIDAEMIA
     Dosage: UNK, UNKNOWN
     Route: 048
  4. METFORMIN HCL [Concomitant]
     Indication: DIABETES MELLITUS
     Dosage: UNK, UNKNOWN
     Route: 065
  5. HUMALOG [Concomitant]
     Indication: DIABETES MELLITUS
     Dosage: 25 U, 3/D
     Route: 058
  6. LANTUS [Concomitant]
     Indication: DIABETES MELLITUS
     Dosage: 18 U, EACH EVENING
     Route: 058
  7. TIZANIDINE HCL [Concomitant]
     Indication: INSOMNIA
     Dosage: 50 MG, UNKNOWN
     Route: 048
  8. PROVERA [Concomitant]
     Indication: HOT FLUSH
     Dosage: 5 MG, UNKNOWN
     Route: 048
  9. GABAPENTIN [Concomitant]
     Indication: NEUROPATHY PERIPHERAL
     Dosage: 300 MG, 3/D
     Route: 048
  10. PREMARIN [Concomitant]
     Dosage: 20 MG, UNKNOWN
     Route: 048
  11. OMEPRAZOLE [Concomitant]
     Dosage: 20 MG, UNKNOWN
     Route: 065
  12. GLIPIZIDE [Concomitant]
     Indication: DIABETES MELLITUS
     Dosage: 10 MG, 2/D
     Route: 048
  13. COZAAR [Concomitant]
     Dosage: 50 MG, UNKNOWN
     Route: 048
  14. HYDROCODONE BITARTRATE + ACETAMINOPHEN [Concomitant]
     Indication: PAIN
     Dosage: UNK, UNKNOWN
     Route: 065
  15. ASPIRIN [Concomitant]
     Dosage: 81 MG, UNKNOWN
     Route: 048
  16. FISH OIL [Concomitant]
     Dosage: 2400 MG, 2/D
     Route: 048

REACTIONS (3)
  - HEPATIC STEATOSIS [None]
  - PANCREATITIS ACUTE [None]
  - WEIGHT FLUCTUATION [None]
